FAERS Safety Report 5859499-6 (Version None)
Quarter: 2008Q3

REPORT INFORMATION
  Report Type: 
  Country: None (occurrence: None)
  Receive Date: 20080827
  Receipt Date: 20080821
  Transmission Date: 20090109
  Serious: Yes (Hospitalization)
  Sender: FDA-Public Use
  Company Number: A0718984A

PATIENT
  Age: 56 Year
  Sex: Male
  Weight: 90.9 kg

DRUGS (11)
  1. AVANDIA [Suspect]
     Dosage: 4MG TWICE PER DAY
     Route: 048
     Dates: start: 19940101, end: 20070701
  2. AVANDAMET [Suspect]
     Route: 048
     Dates: start: 20041001, end: 20050401
  3. ACTOS [Concomitant]
     Dates: start: 19940101, end: 20010201
  4. GLUCOPHAGE [Concomitant]
     Dates: start: 19940101, end: 20031201
  5. METFORMIN HCL [Concomitant]
     Dates: start: 20060101, end: 20070801
  6. INSULIN [Concomitant]
     Dates: start: 20060401, end: 20071101
  7. GLUCOTROL [Concomitant]
     Dates: start: 20010601, end: 20060401
  8. BYETTA [Concomitant]
     Dates: start: 20060101, end: 20060301
  9. CELEBREX [Concomitant]
     Dates: start: 20010901, end: 20011101
  10. LIPITOR [Concomitant]
     Dates: start: 20000401, end: 20060401
  11. VIAGRA [Concomitant]

REACTIONS (1)
  - MYOCARDIAL INFARCTION [None]
